FAERS Safety Report 5096683-6 (Version None)
Quarter: 2006Q3

REPORT INFORMATION
  Report Type: 
  Country: None (occurrence: None)
  Receive Date: 20060831
  Receipt Date: 20060821
  Transmission Date: 20061208
  Serious: Yes (Hospitalization, Other)
  Sender: FDA-Public Use
  Company Number: GB-2006-022162

PATIENT
  Age: 34 Year
  Sex: Female
  Weight: 64 kg

DRUGS (1)
  1. MIRENA [Suspect]
     Dosage: 20 UG/DAY, CONT, INTRA-UTERINE
     Route: 015
     Dates: start: 20050504

REACTIONS (6)
  - BREAST CANCER IN SITU [None]
  - BREAST HYPERPLASIA [None]
  - FIBROADENOMA OF BREAST [None]
  - GALACTORRHOEA [None]
  - HYPOMENORRHOEA [None]
  - VAGINAL DISCHARGE [None]
